FAERS Safety Report 13896226 (Version 2)
Quarter: 2017Q3

REPORT INFORMATION
  Report Type: Spontaneous
  Country: US (occurrence: US)
  Receive Date: 20170823
  Receipt Date: 20170824
  Transmission Date: 20171127
  Serious: Yes (Hospitalization)
  Sender: FDA-Public Use
  Company Number: US-THE MEDICINES COMPANY-US-MDCO-17-00375

PATIENT
  Age: 68 Year
  Sex: Male
  Weight: 69 kg

DRUGS (2)
  1. ORBACTIV [Suspect]
     Active Substance: ORITAVANCIN
     Indication: PRODUCT USED FOR UNKNOWN INDICATION
     Dosage: NOT REPORTED
     Route: 041
     Dates: start: 20170720
  2. ORBACTIV [Suspect]
     Active Substance: ORITAVANCIN
     Route: 041
     Dates: start: 20170711

REACTIONS (3)
  - Infusion site extravasation [Unknown]
  - Thrombophlebitis [Recovered/Resolved]
  - Off label use [Unknown]

NARRATIVE: CASE EVENT DATE: 20170720
